FAERS Safety Report 8203674-2 (Version None)
Quarter: 2012Q1

REPORT INFORMATION
  Report Type: 
  Country: None (occurrence: None)
  Receive Date: 20120308
  Receipt Date: 20120222
  Transmission Date: 20120608
  Serious: Yes (Hospitalization)
  Sender: FDA-Public Use
  Company Number: 2011SGN00344

PATIENT
  Age: 33 Year
  Sex: Female
  Weight: 72.3 kg

DRUGS (9)
  1. COLACE (DOCUSATE SODIUM) [Concomitant]
  2. ADCETRIS [Suspect]
     Indication: HODGKIN'S DISEASE
     Dosage: 1.8 MG/KG, UNK, INTRAVENOUS
     Route: 042
     Dates: start: 20111024, end: 20111031
  3. ENOXAPARIN SODIUM [Concomitant]
  4. COLACE (DOCUASTE SODIUM) [Concomitant]
  5. TENOFOVIR [Concomitant]
  6. EVEROLIMUS (EVEROLIMUS) [Concomitant]
  7. AMOXICILLIN TRIHYDRATE [Concomitant]
  8. ENTECAVIR (ENTECAVIR) [Concomitant]
  9. MULTIVITAMIN (VITAMIN NOS) [Concomitant]

REACTIONS (14)
  - ENTEROCOCCAL INFECTION [None]
  - DIARRHOEA [None]
  - FLATULENCE [None]
  - DEVICE RELATED INFECTION [None]
  - SINUS TACHYCARDIA [None]
  - ABDOMINAL DISTENSION [None]
  - VOMITING [None]
  - ORTHOSTATIC HYPOTENSION [None]
  - PRURITUS [None]
  - BLOOD TRIGLYCERIDES INCREASED [None]
  - SMALL INTESTINAL OBSTRUCTION [None]
  - RENAL FAILURE ACUTE [None]
  - DECREASED APPETITE [None]
  - ILEUS [None]
